FAERS Safety Report 5094896-0 (Version None)
Quarter: 2006Q3

REPORT INFORMATION
  Report Type: 
  Country: None (occurrence: None)
  Receive Date: 20060728
  Receipt Date: 20060517
  Transmission Date: 20061208
  Serious: No
  Sender: FDA-Public Use
  Company Number: 253418

PATIENT
  Age: 75 Year
  Sex: Female

DRUGS (3)
  1. LEVEMIR [Suspect]
     Indication: INSULIN-REQUIRING TYPE II DIABETES MELLITUS
     Dosage: 50 LU, QD, SUBCUTANEOUS
     Route: 058
  2. HUMALOG /00030501/ (INSULIN) [Concomitant]
  3. PREDNISONE TAB [Concomitant]

REACTIONS (1)
  - INJECTION SITE PAIN [None]
